FAERS Safety Report 5358890-4 (Version None)
Quarter: 2007Q2

REPORT INFORMATION
  Report Type: 
  Country: None (occurrence: None)
  Receive Date: 20070615
  Receipt Date: 20070613
  Transmission Date: 20071010
  Serious: Yes (Other)
  Sender: FDA-Public Use
  Company Number: A0643829A

PATIENT
  Age: 60 Year
  Sex: Male

DRUGS (1)
  1. PAXIL CR [Suspect]
     Indication: DEPRESSION
     Dosage: 25MG PER DAY
     Route: 048
     Dates: start: 20040304, end: 20040317

REACTIONS (17)
  - ABNORMAL BEHAVIOUR [None]
  - AGITATION [None]
  - AKATHISIA [None]
  - ANOREXIA [None]
  - ANXIETY [None]
  - DEPERSONALISATION [None]
  - FLAT AFFECT [None]
  - GASTRIC DISORDER [None]
  - INJURY [None]
  - INSOMNIA [None]
  - NERVOUSNESS [None]
  - SOCIAL AVOIDANT BEHAVIOUR [None]
  - SUICIDAL IDEATION [None]
  - SUICIDE ATTEMPT [None]
  - TRAUMATIC BRAIN INJURY [None]
  - TREMOR [None]
  - WEIGHT DECREASED [None]
